FAERS Safety Report 4620363-1 (Version None)
Quarter: 2005Q1

REPORT INFORMATION
  Report Type: 
  Country: None (occurrence: None)
  Receive Date: 20050323
  Receipt Date: 20050323
  Transmission Date: 20050727
  Serious: No
  Sender: FDA-Public Use
  Company Number: None

PATIENT
  Sex: Female
  Weight: 60 kg

DRUGS (8)
  1. CAPECITABINE [Suspect]
     Indication: RECTAL CANCER
     Dosage: 600 MG/M2 Q12 HRS (1200MG/M2/DAY) ORALLY DAILY (7DAYS PER WEEK) DURING RT STARTING DAY 1
     Route: 048
  2. IRINOTECAN HCL [Suspect]
     Dosage: 50 MG/M2 IV OVER 1 HOUR ON DAYS 1,8,15,22; 180 MG/M2 IV OVER 90 MINUTES (DAY 1, EVERY 14 DAYS)
     Route: 042
  3. FLUOROURACIL [Suspect]
     Dosage: INFUSION 2400 MG/M2 IV CONTINUOUS INFUSION OVER 46 HOURS (BEGINNING DAY 1, EVERY 14 DAYS)
     Route: 042
  4. AMBINE [Concomitant]
  5. DILAUDID [Concomitant]
  6. LOMOTIL [Concomitant]
  7. OXYCODONE [Concomitant]
  8. PROTONIX [Concomitant]

REACTIONS (10)
  - ABSCESS [None]
  - BLOOD PRESSURE DECREASED [None]
  - BLOODY DISCHARGE [None]
  - CHILLS [None]
  - DYSPNOEA [None]
  - PELVIC PAIN [None]
  - PERINEAL PAIN [None]
  - POST PROCEDURAL PAIN [None]
  - PYREXIA [None]
  - WHITE BLOOD CELL COUNT INCREASED [None]
